FAERS Safety Report 8820737 (Version 1)
Quarter: 2012Q4

REPORT INFORMATION
  Report Type: 
  Country: US (occurrence: US)
  Receive Date: 20121002
  Receipt Date: 20121002
  Transmission Date: 20130627
  Serious: Yes (Hospitalization, Other)
  Sender: FDA-Public Use
  Company Number: US-PFIZER INC-2012240840

PATIENT
  Age: 91 Year
  Sex: Female
  Weight: 56.7 kg

DRUGS (6)
  1. CELEBREX [Suspect]
     Indication: PAIN
     Dosage: 200 mg, daily
     Route: 048
     Dates: end: 201206
  2. DETROL LA [Suspect]
     Indication: INCONTINENCE
     Dosage: 4 mg, daily
     Route: 048
  3. GLUCOTROL [Suspect]
     Indication: DIABETES MELLITUS
     Dosage: UNK
     Route: 048
  4. GLUCOTROL XL [Suspect]
     Indication: DIABETES MELLITUS
     Dosage: UNK
     Route: 048
  5. ACETYLSALICYLIC ACID [Concomitant]
     Dosage: 325 mg, UNK
  6. ACETYLSALICYLIC ACID [Concomitant]
     Dosage: 81 mg, UNK

REACTIONS (5)
  - Cerebrovascular accident [Recovered/Resolved]
  - Cerebral haemorrhage [Recovering/Resolving]
  - Dysstasia [Recovering/Resolving]
  - Musculoskeletal disorder [Recovering/Resolving]
  - Wrong technique in drug usage process [Unknown]
